FAERS Safety Report 5914794-7 (Version None)
Quarter: 2008Q4

REPORT INFORMATION
  Report Type: 
  Country: None (occurrence: None)
  Receive Date: 20081010
  Receipt Date: 20080930
  Transmission Date: 20090506
  Serious: Yes (Other)
  Sender: FDA-Public Use
  Company Number: US-ROCHE-588941

PATIENT
  Sex: Male
  Weight: 93.4 kg

DRUGS (6)
  1. CAPECITABINE [Suspect]
     Route: 048
     Dates: start: 20080710, end: 20080905
  2. ASPIRIN [Concomitant]
  3. COUMADIN [Concomitant]
  4. FLOMAX [Concomitant]
  5. METFORMIN HCL [Concomitant]
  6. VYTORIN [Concomitant]

REACTIONS (2)
  - METASTASES TO LIVER [None]
  - METASTASES TO LYMPH NODES [None]
